FAERS Safety Report 5689602-2 (Version None)
Quarter: 2008Q1

REPORT INFORMATION
  Report Type: 
  Country: None (occurrence: None)
  Receive Date: 20080331
  Receipt Date: 20080306
  Transmission Date: 20080703
  Serious: No
  Sender: FDA-Public Use
  Company Number: US-BOEHRINGER INGELHEIM GMBH, GERMANY-2008-BP-03514BP

PATIENT
  Sex: Male

DRUGS (2)
  1. MIRAPEX [Suspect]
     Indication: TREMOR
     Route: 048
     Dates: start: 20070101, end: 20080201
  2. MIRAPEX [Suspect]
     Indication: MULTIPLE SCLEROSIS

REACTIONS (2)
  - BACK PAIN [None]
  - MUSCULOSKELETAL STIFFNESS [None]
